FAERS Safety Report 14497350 (Version 1)
Quarter: 2018Q1

REPORT INFORMATION
  Report Type: Spontaneous
  Country: GB (occurrence: GB)
  Receive Date: 20180207
  Receipt Date: 20180207
  Transmission Date: 20180509
  Serious: Yes (Other)
  Sender: FDA-Public Use
  Company Number: GB-VIIV HEALTHCARE LIMITED-GB2018016729

PATIENT
  Age: 22 Year
  Sex: Male
  Weight: 81 kg

DRUGS (1)
  1. TRIUMEQ [Suspect]
     Active Substance: ABACAVIR SULFATE\DOLUTEGRAVIR SODIUM\LAMIVUDINE
     Indication: ACUTE HIV INFECTION
     Dosage: 50 MG, UNK
     Route: 048
     Dates: start: 20170925, end: 20180105

REACTIONS (7)
  - Affect lability [Recovered/Resolved]
  - Depressed mood [Recovered/Resolved]
  - Psychiatric symptom [Recovered/Resolved]
  - Depression [Recovered/Resolved]
  - Suicidal ideation [Recovered/Resolved]
  - Anxiety [Recovered/Resolved]
  - Mood altered [Recovered/Resolved]

NARRATIVE: CASE EVENT DATE: 20171101
